FAERS Safety Report 5559827-5 (Version None)
Quarter: 2007Q4

REPORT INFORMATION
  Report Type: 
  Country: None (occurrence: None)
  Receive Date: 20071214
  Receipt Date: 20071015
  Transmission Date: 20080405
  Serious: No
  Sender: FDA-Public Use
  Company Number: US-ABBOTT-07P-163-0421121-00

PATIENT
  Sex: Female
  Weight: 46.308 kg

DRUGS (9)
  1. HUMIRA [Suspect]
     Indication: CROHN'S DISEASE
     Route: 058
     Dates: start: 20071005, end: 20071005
  2. HUMIRA [Suspect]
     Indication: COLITIS ULCERATIVE
  3. BALSALAZIDE DISODIUM [Concomitant]
     Indication: ANTIINFLAMMATORY THERAPY
     Route: 048
     Dates: start: 20070901
  4. NUVARING [Concomitant]
     Indication: CONTRACEPTION
     Route: 048
     Dates: start: 20050101
  5. METHYLPREDNISOLONE [Concomitant]
     Indication: CROHN'S DISEASE
     Route: 048
     Dates: start: 20070901
  6. METHYLPREDNISOLONE [Concomitant]
     Indication: COLITIS ULCERATIVE
  7. PANTOPRAZOLE SODIUM [Concomitant]
     Indication: GASTRIC DISORDER
     Route: 048
     Dates: start: 20070901
  8. METRONIDAZOLE HCL [Concomitant]
     Indication: CROHN'S DISEASE
     Route: 048
     Dates: start: 20070901
  9. METRONIDAZOLE HCL [Concomitant]
     Indication: COLITIS ULCERATIVE

REACTIONS (2)
  - BODY TEMPERATURE FLUCTUATION [None]
  - PAIN IN EXTREMITY [None]
